FAERS Safety Report 5158324-9 (Version None)
Quarter: 2006Q4

REPORT INFORMATION
  Report Type: 
  Country: None (occurrence: None)
  Receive Date: 20061116
  Receipt Date: 20061102
  Transmission Date: 20070319
  Serious: Yes (Hospitalization)
  Sender: FDA-Public Use
  Company Number: 36462

PATIENT
  Age: 36 Year
  Sex: Female

DRUGS (2)
  1. TRAVATAN [Suspect]
     Indication: OCULAR HYPERTENSION
     Dosage: 1 GGT OU HS OPTH
     Route: 047
     Dates: start: 20060504, end: 20060921
  2. LEVOTHYROXINE SODIUM [Concomitant]

REACTIONS (2)
  - ABORTION SPONTANEOUS [None]
  - DRUG EXPOSURE DURING PREGNANCY [None]
